FAERS Safety Report 8133308-7 (Version None)
Quarter: 2012Q1

REPORT INFORMATION
  Report Type: 
  Country: None (occurrence: None)
  Receive Date: 20120213
  Receipt Date: 20120209
  Transmission Date: 20120608
  Serious: Yes (Other)
  Sender: FDA-Public Use
  Company Number: CA-ROCHE-1037613

PATIENT
  Sex: Female
  Weight: 59.02 kg

DRUGS (13)
  1. PREDNISONE TAB [Concomitant]
     Route: 048
  2. METFORMIN HCL [Concomitant]
     Route: 048
  3. ESCITALOPRAM [Concomitant]
  4. ADVAIR DISKUS 100/50 [Concomitant]
     Route: 055
  5. FUROSEMIDE [Concomitant]
  6. NASACORT [Concomitant]
  7. WARFARIN SODIUM [Concomitant]
     Dosage: 2-2.5 MG
     Route: 048
  8. OXYCODONE HCL [Concomitant]
  9. ALENDRONATE SODIUM [Concomitant]
  10. ACTEMRA [Suspect]
     Indication: RHEUMATOID ARTHRITIS
     Route: 042
     Dates: start: 20120201
  11. RABEPRAZOLE SODIUM [Concomitant]
     Route: 048
  12. TRANDOLAPRIL [Concomitant]
  13. SPIRONOLACTONE [Concomitant]

REACTIONS (1)
  - RHEUMATOID ARTHRITIS [None]
